FAERS Safety Report 9233944 (Version 1)
Quarter: 2013Q2

REPORT INFORMATION
  Report Type: Spontaneous
  Country: US (occurrence: US)
  Receive Date: 20130416
  Receipt Date: 20130416
  Transmission Date: 20140414
  Serious: Yes (Other)
  Sender: FDA-Public Use
  Company Number: US-JNJFOC-20130402880

PATIENT
  Age: 17 Year
  Sex: Female

DRUGS (1)
  1. INFLIXIMAB, RECOMBINANT [Suspect]
     Indication: CROHN^S DISEASE
     Dosage: RECEIVED AT WEEKS 0, 2, 6 AND THEN EVERY 8 WEEKS THEREAFTER
     Route: 042

REACTIONS (1)
  - Psoriasis [Recovered/Resolved]
